FAERS Safety Report 6974778-7 (Version None)
Quarter: 2010Q3

REPORT INFORMATION
  Report Type: 
  Country: None (occurrence: None)
  Receive Date: 20100909
  Receipt Date: 20081218
  Transmission Date: 20110219
  Serious: No
  Sender: FDA-Public Use
  Company Number: US-WYE-H07365308

PATIENT
  Sex: Female
  Weight: 85.35 kg

DRUGS (5)
  1. PRISTIQ [Suspect]
     Indication: DEPRESSION
     Route: 048
     Dates: start: 20081204, end: 20081218
  2. ETHINYLESTRADIOL/NORGESTREL [Concomitant]
  3. FLEXERIL [Concomitant]
  4. REGLAN [Concomitant]
  5. NEXIUM [Concomitant]

REACTIONS (1)
  - ALOPECIA [None]
